FAERS Safety Report 13566278 (Version 1)
Quarter: 2017Q2

REPORT INFORMATION
  Report Type: Spontaneous
  Country: US (occurrence: US)
  Receive Date: 20170521
  Receipt Date: 20170521
  Transmission Date: 20170830
  Serious: No
  Sender: FDA-Public Use
  Company Number: US-PFM-2017-03095

PATIENT
  Age: 6 Month
  Sex: Female
  Weight: 5.5 kg

DRUGS (2)
  1. HEMANGEOL [Suspect]
     Active Substance: PROPRANOLOL HYDROCHLORIDE
     Dosage: 1.4 ML, BID (2/DAY)
     Route: 048
     Dates: start: 20170315
  2. HEMANGEOL [Suspect]
     Active Substance: PROPRANOLOL HYDROCHLORIDE
     Indication: INFANTILE HAEMANGIOMA
     Dosage: 0.7 ML, BID (2/DAY)
     Route: 048
     Dates: start: 20170308, end: 20170314

REACTIONS (1)
  - Blood pressure decreased [Unknown]
